FAERS Safety Report 24134633 (Version 2)
Quarter: 2024Q3

REPORT INFORMATION
  Report Type: Spontaneous
  Country: BR (occurrence: BR)
  Receive Date: 20240725
  Receipt Date: 20240826
  Transmission Date: 20241016
  Serious: Yes (Other)
  Sender: AMGEN
  Company Number: BR-AMGEN-BRASP2024143780

PATIENT
  Sex: Male

DRUGS (6)
  1. PEGFILGRASTIM [Suspect]
     Active Substance: PEGFILGRASTIM
     Indication: Colony stimulating factor therapy
     Dosage: 6 MILLIGRAM, Q3WK (EVERY 21 DAYS) (ACCORDING TO QT)
     Route: 058
     Dates: start: 20240709
  2. RITUXIMAB [Concomitant]
     Active Substance: RITUXIMAB
  3. CYCLOPHOSPHAMIDE [Concomitant]
     Active Substance: CYCLOPHOSPHAMIDE
  4. EPIRUBICIN [Concomitant]
     Active Substance: EPIRUBICIN
  5. ONCOVIN [Concomitant]
     Active Substance: VINCRISTINE SULFATE
  6. PREDNISONE [Concomitant]
     Active Substance: PREDNISONE

REACTIONS (2)
  - Febrile neutropenia [Recovered/Resolved]
  - Drug ineffective [Unknown]

NARRATIVE: CASE EVENT DATE: 20240701
